FAERS Safety Report 23148509 (Version 2)
Quarter: 2023Q4

REPORT INFORMATION
  Report Type: Report from Study
  Country: DE (occurrence: DE)
  Receive Date: 20231106
  Receipt Date: 20231229
  Transmission Date: 20240110
  Serious: Yes (Other)
  Sender: FDA-Public Use
  Company Number: DE-UCBSA-2023004910

PATIENT
  Sex: Female
  Weight: 67 kg

DRUGS (2)
  1. BIMEKIZUMAB [Suspect]
     Active Substance: BIMEKIZUMAB
     Indication: Psoriasis
     Dosage: 320 MILLIGRAM, EV 4 WEEKS
     Route: 058
     Dates: start: 20221129, end: 2023
  2. BIMEKIZUMAB [Suspect]
     Active Substance: BIMEKIZUMAB
     Dosage: 320 MILLIGRAM, EV 8 WEEKS
     Route: 058
     Dates: start: 2023, end: 20230601

REACTIONS (4)
  - Pneumonia [Recovered/Resolved]
  - Oral fungal infection [Recovered/Resolved]
  - Pustule [Recovered/Resolved]
  - Gingival recession [Recovered/Resolved]

NARRATIVE: CASE EVENT DATE: 20230109
